FAERS Safety Report 5798919-2 (Version None)
Quarter: 2008Q3

REPORT INFORMATION
  Report Type: 
  Country: None (occurrence: None)
  Receive Date: 20080702
  Receipt Date: 20080624
  Transmission Date: 20090109
  Serious: Yes (Other)
  Sender: FDA-Public Use
  Company Number: US-PFIZER INC-2008053795

PATIENT
  Sex: Female
  Weight: 74.8 kg

DRUGS (1)
  1. CHANTIX [Suspect]
     Indication: SMOKING CESSATION THERAPY
     Route: 048

REACTIONS (9)
  - CRYING [None]
  - DYSPHONIA [None]
  - IRRITABILITY [None]
  - LARYNGEAL POLYP [None]
  - NAUSEA [None]
  - POLYP [None]
  - STRESS [None]
  - THROAT TIGHTNESS [None]
  - WRONG TECHNIQUE IN DRUG USAGE PROCESS [None]
